FAERS Safety Report 23146115 (Version 2)
Quarter: 2024Q1

REPORT INFORMATION
  Report Type: Report from Study
  Country: GB (occurrence: GB)
  Receive Date: 20231104
  Receipt Date: 20240214
  Transmission Date: 20240410
  Serious: Yes (Other)
  Sender: FDA-Public Use
  Company Number: GB-002147023-NVSC2022GB254714

PATIENT
  Sex: Male

DRUGS (1)
  1. KESIMPTA [Suspect]
     Active Substance: OFATUMUMAB
     Indication: Multiple sclerosis
     Dosage: 20 MG, QMO (WEEKLY FOR FIRST MONTH (NOT WEEK 3))
     Route: 058
     Dates: start: 20221031

REACTIONS (8)
  - Immunisation reaction [Unknown]
  - Hyperhidrosis [Unknown]
  - Delirium [Unknown]
  - Pain [Unknown]
  - Influenza like illness [Recovering/Resolving]
  - Influenza [Unknown]
  - Device issue [Unknown]
  - Incorrect dose administered by device [Unknown]
